FAERS Safety Report 4559307-X (Version None)
Quarter: 2005Q1

REPORT INFORMATION
  Report Type: 
  Country: None (occurrence: None)
  Receive Date: 20050124
  Receipt Date: 20050114
  Transmission Date: 20050727
  Serious: Yes (Hospitalization)
  Sender: FDA-Public Use
  Company Number: US-JNJFOC-20050104176

PATIENT
  Sex: Female
  Weight: 86.18 kg

DRUGS (5)
  1. DURAGESIC [Suspect]
     Route: 062
  2. VICODIN [Concomitant]
     Route: 049
  3. VICODIN [Concomitant]
     Route: 049
  4. PLAQUENIL [Concomitant]
     Route: 049
  5. ENBREL [Concomitant]
     Route: 050

REACTIONS (1)
  - HERNIA REPAIR [None]
